FAERS Safety Report 21965182 (Version 1)
Quarter: 2023Q1

REPORT INFORMATION
  Report Type: Spontaneous
  Country: US (occurrence: US)
  Receive Date: 20230208
  Receipt Date: 20230208
  Transmission Date: 20230418
  Serious: Yes (Other)
  Sender: FDA-Public Use
  Company Number: US-BIOVITRUM-2023US01685

PATIENT
  Sex: Female

DRUGS (5)
  1. CANAKINUMAB [Suspect]
     Active Substance: CANAKINUMAB
  2. RUXOLITINIB [Suspect]
     Active Substance: RUXOLITINIB
  3. CYCLOPHOSPHAMIDE [Suspect]
     Active Substance: CYCLOPHOSPHAMIDE
  4. GAMIFANT [Suspect]
     Active Substance: EMAPALUMAB-LZSG
     Indication: Product used for unknown indication
  5. TACROLIMUS [Suspect]
     Active Substance: TACROLIMUS

REACTIONS (2)
  - Still^s disease [Unknown]
  - Haemophagocytic lymphohistiocytosis [Unknown]
